FAERS Safety Report 19806868 (Version 1)
Quarter: 2021Q3

REPORT INFORMATION
  Report Type: Other
  Country: US (occurrence: US)
  Receive Date: 20210908
  Receipt Date: 20210908
  Transmission Date: 20211014
  Serious: Yes (Other)
  Sender: FDA-Public Use
  Company Number: US-ROCHE-2904311

PATIENT

DRUGS (4)
  1. ASPIRIN ENTERIC?COATED [Suspect]
     Active Substance: ASPIRIN
     Indication: NEOPLASM MALIGNANT
     Dosage: DAY 1?84
     Route: 048
  2. IL?2 [Suspect]
     Active Substance: ALDESLEUKIN
     Indication: NEOPLASM MALIGNANT
     Dosage: 2MIU/DOSE GIVEN FOR 5 CONSECUTIVE DAYS FOLLOWING EACH OCDC
     Route: 058
  3. CYCLOPHOSPHAMIDE. [Suspect]
     Active Substance: CYCLOPHOSPHAMIDE
     Indication: NEOPLASM MALIGNANT
     Route: 042
  4. BEVACIZUMAB. [Suspect]
     Active Substance: BEVACIZUMAB
     Indication: NEOPLASM MALIGNANT
     Dosage: GIVEN ON THE SAME DAY AS OCDC, ON THE NEXT DAY
     Route: 042

REACTIONS (7)
  - Thrombocytosis [Unknown]
  - Neutrophil count decreased [Unknown]
  - Arrhythmia [Unknown]
  - Skin infection [Unknown]
  - Hypotension [Unknown]
  - Proteinuria [Unknown]
  - Vomiting [Unknown]
